FAERS Safety Report 6654118-3 (Version None)
Quarter: 2010Q1

REPORT INFORMATION
  Report Type: 
  Country: None (occurrence: None)
  Receive Date: 20100326
  Receipt Date: 20100318
  Transmission Date: 20100710
  Serious: Yes (Other)
  Sender: FDA-Public Use
  Company Number: US-AMGEN-QUU400631

PATIENT
  Sex: Male

DRUGS (3)
  1. NPLATE [Suspect]
     Indication: IDIOPATHIC THROMBOCYTOPENIC PURPURA
     Dates: start: 20080922, end: 20090407
  2. IMMU-G [Concomitant]
     Dates: start: 20080510
  3. RITUXIMAB [Concomitant]
     Dates: start: 20080910

REACTIONS (2)
  - BONE MARROW RETICULIN FIBROSIS [None]
  - THERAPEUTIC RESPONSE DECREASED [None]
